FAERS Safety Report 9224182 (Version 1)
Quarter: 2013Q1

REPORT INFORMATION
  Report Type: Spontaneous
  Country: BE (occurrence: None)
  Receive Date: 20120914
  Receipt Date: 20120914
  Transmission Date: 20140127
  Serious: Yes (Other)
  Sender: FDA-Public Use
  Company Number: JPI-P-018239

PATIENT
  Age: 38 Year
  Sex: Male

DRUGS (1)
  1. XYREM (500 MILLIGRAM/MILLILITERS, SOLUTION) (SODIUM OXYBATE) [Suspect]
     Indication: CATAPLEXY
     Dosage: 4 GM (2 GM,2 IN 1 D)
     Route: 048
     Dates: start: 20110404, end: 2011

REACTIONS (5)
  - Delusion [None]
  - Self esteem decreased [None]
  - Stress at work [None]
  - Disturbance in attention [None]
  - Irritability [None]
